FAERS Safety Report 25985793 (Version 2)
Quarter: 2025Q4

REPORT INFORMATION
  Report Type: Spontaneous
  Country: EU (occurrence: EU)
  Receive Date: 20251101
  Receipt Date: 20251219
  Transmission Date: 20260117
  Serious: Yes (Hospitalization)
  Sender: TEVA
  Company Number: None

PATIENT
  Age: 85 Year
  Sex: Female
  Weight: 65 kg

DRUGS (3)
  1. HYDROCHLOROTHIAZIDE\VALSARTAN [Interacting]
     Active Substance: HYDROCHLOROTHIAZIDE\VALSARTAN
     Indication: Hypertension
     Dosage: 1 PIECE(S) ONCE A DAY, ADDITIONAL INFORMATION: VALSARTAN 80/ HCT 12.5; TAB OMH 80/12.5MG / BRAND ...
     Route: 048
     Dates: start: 20100101, end: 20140408
  2. DESMOPRESSIN [Interacting]
     Active Substance: DESMOPRESSIN
     Indication: Nocturia
     Dosage: 1 PIECE(S) ONCE A DAY, ADDITIONAL INFORMATION: DESMOPRESSIN 120UG; DESMOPRESSIN LYOPHILIZATE/ BRA...
     Route: 060
     Dates: start: 20140330, end: 20140408
  3. FUROSEMIDE [Interacting]
     Active Substance: FUROSEMIDE
     Indication: Hypertension
     Dosage: 1 PIECE(S) ONCE A DAY, ADDITIONAL INFORMATION: FUROSEMIDE 40MG; BRAND NAME NOT SPECIFIED
     Route: 048
     Dates: start: 20140327

REACTIONS (2)
  - Hyponatraemia [Recovering/Resolving]
  - Drug interaction [Recovering/Resolving]

NARRATIVE: CASE EVENT DATE: 20140408
